FAERS Safety Report 15488274 (Version 1)
Quarter: 2018Q4

REPORT INFORMATION
  Report Type: Spontaneous
  Country: US (occurrence: US)
  Receive Date: 20181011
  Receipt Date: 20181011
  Transmission Date: 20190205
  Serious: No
  Sender: FDA-Public Use
  Company Number: US-PFIZER INC-2018404105

PATIENT
  Age: 3 Year
  Sex: Male

DRUGS (1)
  1. GENOTROPIN MQ [Suspect]
     Active Substance: SOMATROPIN
     Indication: SEPTO-OPTIC DYSPLASIA
     Dosage: 0.4 MG, DAILY
     Dates: start: 201412

REACTIONS (3)
  - Insulin-like growth factor increased [Unknown]
  - Product use in unapproved indication [Unknown]
  - Blood thyroid stimulating hormone decreased [Unknown]

NARRATIVE: CASE EVENT DATE: 20180201
